FAERS Safety Report 23968935 (Version 1)
Quarter: 2024Q2

REPORT INFORMATION
  Report Type: Spontaneous
  Country: US (occurrence: US)
  Receive Date: 20240612
  Receipt Date: 20240612
  Transmission Date: 20240716
  Serious: No
  Sender: FDA-Public Use
  Company Number: US-Calliditas-2024CAL00944

PATIENT
  Age: 56 Year
  Sex: Male
  Weight: 110 kg

DRUGS (1)
  1. TARPEYO [Suspect]
     Active Substance: BUDESONIDE
     Indication: IgA nephropathy
     Route: 048
     Dates: start: 20240509

REACTIONS (11)
  - Pollakiuria [Unknown]
  - Weight decreased [Recovered/Resolved]
  - Fluid retention [Unknown]
  - Urine odour abnormal [Unknown]
  - Heart rate increased [Unknown]
  - Acne [Unknown]
  - Hyperhidrosis [Unknown]
  - Erythema [Unknown]
  - Erythema [Unknown]
  - Hypertension [Unknown]
  - Energy increased [Unknown]
